FAERS Safety Report 4450695-1 (Version None)
Quarter: 2004Q3

REPORT INFORMATION
  Report Type: 
  Country: None (occurrence: None)
  Receive Date: 20040915
  Receipt Date: 20040915
  Transmission Date: 20050211
  Serious: Yes (Life-Threatening)
  Sender: FDA-Public Use
  Company Number: None

PATIENT
  Age: 78 Year
  Sex: Female
  Weight: 75.5 kg

DRUGS (1)
  1. TAXOL [Suspect]
     Dates: start: 20040907

REACTIONS (1)
  - MEDICAL DEVICE COMPLICATION [None]
